FAERS Safety Report 23241273 (Version 1)
Quarter: 2023Q4

REPORT INFORMATION
  Report Type: Other
  Country: CN (occurrence: CN)
  Receive Date: 20231129
  Receipt Date: 20231129
  Transmission Date: 20240110
  Serious: Yes (Hospitalization)
  Sender: FDA-Public Use
  Company Number: CN-GE HEALTHCARE-2023CSU010703

PATIENT
  Age: 55 Year
  Sex: Female
  Weight: 76 kg

DRUGS (4)
  1. VISIPAQUE [Suspect]
     Active Substance: IODIXANOL
     Indication: Diagnostic procedure
     Dosage: 100 ML, SINGLE
     Route: 042
     Dates: start: 20231025, end: 20231025
  2. VISIPAQUE [Suspect]
     Active Substance: IODIXANOL
     Indication: Radiotherapy
  3. VISIPAQUE [Suspect]
     Active Substance: IODIXANOL
     Indication: Metastases to central nervous system
  4. VISIPAQUE [Suspect]
     Active Substance: IODIXANOL
     Indication: Ovarian cancer metastatic

REACTIONS (4)
  - Skin ulcer [Recovered/Resolved]
  - Rash [Recovered/Resolved]
  - Pruritus [Recovered/Resolved]
  - Erythema [Recovered/Resolved]

NARRATIVE: CASE EVENT DATE: 20231025
